FAERS Safety Report 7652649-0 (Version None)
Quarter: 2011Q3

REPORT INFORMATION
  Report Type: 
  Country: None (occurrence: None)
  Receive Date: 20110803
  Receipt Date: 20110721
  Transmission Date: 20111222
  Serious: No
  Sender: FDA-Public Use
  Company Number: US-B.I. PHARMACEUTICALS,INC./RIDGEFIELD-2011-BP-15807BP

PATIENT
  Age: 55 Year
  Sex: Male
  Weight: 82.8 kg

DRUGS (3)
  1. PRADAXA [Suspect]
     Indication: ATRIAL FIBRILLATION
     Dosage: 300 MG
     Route: 048
     Dates: start: 20110402, end: 20110412
  2. SIMVASTATIN [Concomitant]
     Dosage: 20 MG
     Dates: start: 20101001
  3. FLOMAX [Concomitant]
     Dosage: 0.4 MG
     Dates: start: 20100101

REACTIONS (5)
  - PARAESTHESIA [None]
  - TOOTHACHE [None]
  - ABNORMAL DREAMS [None]
  - ABDOMINAL DISTENSION [None]
  - VISION BLURRED [None]
